FAERS Safety Report 16668013 (Version 2)
Quarter: 2019Q4

REPORT INFORMATION
  Report Type: Spontaneous
  Country: CH (occurrence: CH)
  Receive Date: 20190805
  Receipt Date: 20191002
  Transmission Date: 20200122
  Serious: Yes (Other)
  Sender: FDA-Public Use
  Company Number: CH-JNJFOC-20190802417

PATIENT
  Age: 29 Year
  Sex: Female

DRUGS (4)
  1. RIVAROXABAN [Suspect]
     Active Substance: RIVAROXABAN
     Indication: PULMONARY EMBOLISM
     Dosage: 20 MG, UNK
     Route: 048
     Dates: start: 20190624, end: 20190715
  2. SINTROM [Suspect]
     Active Substance: ACENOCOUMAROL
     Indication: PULMONARY EMBOLISM
     Dosage: 1 MG, PRN
     Route: 048
     Dates: start: 20190222, end: 20190310
  3. FRAXIFORTE [Concomitant]
     Active Substance: NADROPARIN CALCIUM
     Dosage: 0.6 ML, QD
     Route: 058
     Dates: start: 20190310, end: 20190624
  4. FRAXIFORTE [Concomitant]
     Active Substance: NADROPARIN CALCIUM
     Dosage: 0.6 ML, QD
     Route: 058
     Dates: start: 20190715

REACTIONS (1)
  - Alopecia [Recovering/Resolving]

NARRATIVE: CASE EVENT DATE: 201903
